FAERS Safety Report 5387560-1 (Version None)
Quarter: 2007Q3

REPORT INFORMATION
  Report Type: 
  Country: None (occurrence: None)
  Receive Date: 20070711
  Receipt Date: 20070711
  Transmission Date: 20080115
  Serious: Yes (Other)
  Sender: FDA-Public Use
  Company Number: None

PATIENT
  Sex: Female
  Weight: 82.5547 kg

DRUGS (9)
  1. CHANTIX [Suspect]
     Indication: SMOKING CESSATION THERAPY
     Dosage: .5MG BID PO
     Route: 048
     Dates: start: 20070404, end: 20070411
  2. CHANTIX [Suspect]
     Indication: SMOKING CESSATION THERAPY
     Dosage: 1MG BID PO
     Route: 048
     Dates: start: 20070412, end: 20070414
  3. SYNTHROID [Concomitant]
  4. ZYRTEC [Concomitant]
  5. FOLIC ACID [Concomitant]
  6. AVAPRO [Concomitant]
  7. VYTORIN [Concomitant]
  8. ZOLOFT [Concomitant]
  9. CLONAZEPAM [Concomitant]

REACTIONS (10)
  - AMNESIA [None]
  - ANXIETY [None]
  - EMOTIONAL DISORDER [None]
  - FEAR [None]
  - MAJOR DEPRESSION [None]
  - PARANOIA [None]
  - PERSONALITY CHANGE [None]
  - SOCIAL AVOIDANT BEHAVIOUR [None]
  - SUICIDAL IDEATION [None]
  - THINKING ABNORMAL [None]
